FAERS Safety Report 5344476-4 (Version None)
Quarter: 2007Q2

REPORT INFORMATION
  Report Type: 
  Country: None (occurrence: None)
  Receive Date: 20070604
  Receipt Date: 20070525
  Transmission Date: 20071010
  Serious: Yes (Other)
  Sender: FDA-Public Use
  Company Number: US-PFIZER INC-2007026692

PATIENT
  Sex: Male
  Weight: 74.4 kg

DRUGS (3)
  1. CAMPTOSAR [Suspect]
     Indication: COLON CANCER METASTATIC
     Dosage: FREQ:EVERY 3 WEEKS
     Route: 042
  2. ELOXATIN [Concomitant]
  3. AVASTIN [Concomitant]

REACTIONS (1)
  - NEURALGIA [None]
